FAERS Safety Report 10948405 (Version 1)
Quarter: 2015Q1

REPORT INFORMATION
  Report Type: Spontaneous
  Country: GB (occurrence: GB)
  Receive Date: 20150324
  Receipt Date: 20150324
  Transmission Date: 20150721
  Serious: Yes (Other)
  Sender: FDA-Public Use
  Company Number: GB-TEVA-548235ACC

PATIENT
  Age: 72 Year
  Sex: Female

DRUGS (4)
  1. BACLOFEN. [Suspect]
     Active Substance: BACLOFEN
     Indication: MUSCLE SPASTICITY
     Dosage: 30 MILLIGRAM DAILY; RECIEVED 5 DOSES.
     Route: 048
     Dates: start: 20150223, end: 20150224
  2. CITALOPRAM [Concomitant]
     Active Substance: CITALOPRAM HYDROBROMIDE
     Dosage: 8 MILLIGRAM DAILY;
     Route: 048
  3. LANSOPRAZOLE. [Concomitant]
     Active Substance: LANSOPRAZOLE
     Dosage: 30 MILLIGRAM DAILY; 30 MG, ORODISPERSIBLE TABLET
     Route: 048
  4. LITHIUM CITRATE. [Concomitant]
     Active Substance: LITHIUM CITRATE
     Dosage: 12.5 ML DAILY; TAKEN AT NIGHT.
     Route: 048

REACTIONS (2)
  - Incontinence [Recovered/Resolved]
  - Confusional state [Recovered/Resolved]

NARRATIVE: CASE EVENT DATE: 20150223
